FAERS Safety Report 24707100 (Version 2)
Quarter: 2024Q4

REPORT INFORMATION
  Report Type: Spontaneous
  Country: US (occurrence: US)
  Receive Date: 20241206
  Receipt Date: 20241219
  Transmission Date: 20250115
  Serious: No
  Sender: DR REDDYS
  Company Number: US-DRL-USA-SPO/USA/24/0017911

PATIENT
  Sex: Female

DRUGS (3)
  1. NICOTINE [Suspect]
     Active Substance: NICOTINE
     Indication: Product used for unknown indication
     Dosage: NICOTINE TRANSDERMAL SYSTEM STEP 21MG
     Route: 062
  2. MAGNESIUM [Concomitant]
     Active Substance: MAGNESIUM
     Indication: Blood pressure measurement
     Route: 065
  3. LOSARTAN [Concomitant]
     Active Substance: LOSARTAN
     Indication: Blood pressure measurement
     Route: 065

REACTIONS (1)
  - Dyspnoea [Unknown]
